FAERS Safety Report 16197397 (Version 3)
Quarter: 2019Q4

REPORT INFORMATION
  Report Type: Spontaneous
  Country: BR (occurrence: BR)
  Receive Date: 20190415
  Receipt Date: 20191011
  Transmission Date: 20200122
  Serious: Yes (Hospitalization, Other)
  Sender: FDA-Public Use
  Company Number: BR-GLAXOSMITHKLINE-BR2019GSK067191

PATIENT
  Age: 4 Year

DRUGS (2)
  1. ZINNAT [Suspect]
     Active Substance: CEFUROXIME
     Indication: SINUSITIS
     Dosage: UNK
  2. ZINNAT [Suspect]
     Active Substance: CEFUROXIME
     Indication: CELLULITIS

REACTIONS (3)
  - Drug ineffective [Unknown]
  - Pneumonia [Unknown]
  - Pyrexia [Unknown]
